FAERS Safety Report 15203765 (Version 1)
Quarter: 2018Q3

REPORT INFORMATION
  Report Type: Spontaneous
  Country: DE (occurrence: DE)
  Receive Date: 20180726
  Receipt Date: 20180726
  Transmission Date: 20181010
  Serious: Yes (Death, Life-Threatening, Hospitalization, Other)
  Sender: FDA-Public Use
  Company Number: DE-TEVA-2018-DE-929105

PATIENT
  Age: 73 Year
  Sex: Female
  Weight: 106 kg

DRUGS (50)
  1. 5?FU [Suspect]
     Active Substance: FLUOROURACIL
     Dosage: 1280 MG BOLUS?1900 MG DRIP
     Route: 042
     Dates: start: 20140211, end: 20140212
  2. OXALIPLATIN. [Suspect]
     Active Substance: OXALIPLATIN
     Route: 042
     Dates: start: 20140121, end: 20140121
  3. 5?FU [Suspect]
     Active Substance: FLUOROURACIL
     Dosage: 720 MG BOLUS ?1800 MG DRIP
     Route: 042
     Dates: start: 20140715, end: 20140716
  4. OXALIPLATIN. [Suspect]
     Active Substance: OXALIPLATIN
     Route: 042
     Dates: start: 20131029, end: 20131029
  5. 5?FU [Suspect]
     Active Substance: FLUOROURACIL
     Dosage: 1280 MG BOLUS?1900 MG DRIP
     Route: 042
     Dates: start: 20131119, end: 20131120
  6. OXALIPLATIN. [Suspect]
     Active Substance: OXALIPLATIN
     Route: 042
     Dates: start: 20131210, end: 20131210
  7. FOLINIC ACID [Suspect]
     Active Substance: LEUCOVORIN
     Route: 042
     Dates: start: 20140930, end: 20141001
  8. LONQUEX [Concomitant]
     Active Substance: LIPEGFILGRASTIM
     Indication: PROPHYLAXIS
     Route: 058
     Dates: start: 20140716, end: 20140716
  9. 5?FU [Suspect]
     Active Substance: FLUOROURACIL
     Dosage: 1600 MG BOLUS?2400 MG DRIP
     Route: 042
     Dates: start: 20131029, end: 20131030
  10. FOLINIC ACID [Suspect]
     Active Substance: LEUCOVORIN
     Route: 042
     Dates: start: 20140121, end: 20140122
  11. 5?FU [Suspect]
     Active Substance: FLUOROURACIL
     Dosage: 720 MG BOLUS?1800 MG DRIP
     Route: 042
     Dates: start: 20140916, end: 20140917
  12. FOLINIC ACID [Suspect]
     Active Substance: LEUCOVORIN
     Route: 042
     Dates: start: 20140822, end: 20140823
  13. OXALIPLATIN. [Suspect]
     Active Substance: OXALIPLATIN
     Dosage: DAILY DOSE: 140 MG MILLGRAM(S) EVERY 2 WEEKS
     Route: 042
     Dates: start: 20140326, end: 20140327
  14. 5?FU [Suspect]
     Active Substance: FLUOROURACIL
     Dosage: 1600 MG BOLUS?2400 MG DRIP
     Route: 042
     Dates: start: 20140415, end: 20140415
  15. 5?FU [Suspect]
     Active Substance: FLUOROURACIL
     Indication: COLORECTAL CANCER METASTATIC
     Dosage: 1600 MG BOLUS?2400 MG DRIP
     Route: 042
     Dates: start: 20131008, end: 20131009
  16. FOLINIC ACID [Suspect]
     Active Substance: LEUCOVORIN
     Route: 042
     Dates: start: 20131119, end: 20131120
  17. GLANDOMED [Concomitant]
     Indication: MUCOSAL INFLAMMATION
     Route: 065
     Dates: start: 20131029
  18. PANTOZOL [Concomitant]
     Active Substance: PANTOPRAZOLE SODIUM
     Indication: PROPHYLAXIS
     Dosage: 40 MILLIGRAM DAILY; DAILY DOSE: 40 MG MILLGRAM(S) EVERY DAYS
     Route: 048
  19. NEULASTA [Concomitant]
     Active Substance: PEGFILGRASTIM
     Indication: PROPHYLAXIS
     Dosage: 6 MILLIGRAM DAILY; DAILY DOSE: 6 MG MILLGRAM(S) EVERY DAYS
     Route: 058
     Dates: start: 20140605, end: 20140703
  20. FOLINIC ACID [Suspect]
     Active Substance: LEUCOVORIN
     Indication: COLORECTAL CANCER METASTATIC
     Route: 042
     Dates: start: 20131008, end: 20131009
  21. L?THYROXIN [Concomitant]
     Active Substance: LEVOTHYROXINE SODIUM
     Indication: HYPOTHYROIDISM
     Dosage: 50 MICROGRAM DAILY; DAILY DOSE: 50 ?G MICROGRAM(S) EVERY DAYS
     Route: 048
  22. URO?TABLINEN [Concomitant]
     Indication: URINARY TRACT INFECTION
     Dosage: 50 MILLIGRAM DAILY; DAILY DOSE: 50 MG MILLGRAM(S) EVERY DAYS
     Route: 048
  23. FOLINIC ACID [Suspect]
     Active Substance: LEUCOVORIN
     Route: 042
     Dates: start: 20131029, end: 20131030
  24. FOLINIC ACID [Suspect]
     Active Substance: LEUCOVORIN
     Route: 042
     Dates: start: 20140916, end: 20140917
  25. FOLINIC ACID [Suspect]
     Active Substance: LEUCOVORIN
     Route: 042
     Dates: start: 20140701, end: 20140702
  26. FOLINIC ACID [Suspect]
     Active Substance: LEUCOVORIN
     Route: 042
     Dates: start: 20140715, end: 20140716
  27. 5?FU [Suspect]
     Active Substance: FLUOROURACIL
     Dosage: 1280 MG BOLUS ?1900 MG DRIP
     Route: 042
     Dates: start: 20140121, end: 20140122
  28. FOLINIC ACID [Suspect]
     Active Substance: LEUCOVORIN
     Route: 042
     Dates: start: 20140617, end: 20140618
  29. 5?FU [Suspect]
     Active Substance: FLUOROURACIL
     Dosage: 720 MG BOLUS?1800 MG DRIP
     Route: 042
     Dates: start: 20140701, end: 20140702
  30. FOLINIC ACID [Suspect]
     Active Substance: LEUCOVORIN
     Dosage: DAILY DOSE: 800 MG MILLGRAM(S) EVERY 2 WEEKS
     Route: 042
     Dates: start: 20140326, end: 20140327
  31. OXALIPLATIN. [Suspect]
     Active Substance: OXALIPLATIN
     Indication: COLORECTAL CANCER METASTATIC
     Route: 042
     Dates: start: 20131008, end: 20131008
  32. FOLINIC ACID [Suspect]
     Active Substance: LEUCOVORIN
     Route: 042
     Dates: start: 20140415, end: 20140416
  33. NOVAMINSULFON [Concomitant]
     Active Substance: METAMIZOLE
     Indication: PAIN
     Dosage: 3 GTT DAILY; DAILY DOSE: 90 GTT DROP(S) EVERY DAYS
     Route: 048
  34. OXALIPLATIN. [Suspect]
     Active Substance: OXALIPLATIN
     Route: 042
     Dates: start: 20140211, end: 20140211
  35. FOLINIC ACID [Suspect]
     Active Substance: LEUCOVORIN
     Route: 042
     Dates: start: 20140603, end: 20140604
  36. 5?FU [Suspect]
     Active Substance: FLUOROURACIL
     Dosage: 720 MG BOLUS?1800 MG DRIP
     Route: 042
     Dates: start: 20140603, end: 20140604
  37. 5?FU [Suspect]
     Active Substance: FLUOROURACIL
     Dosage: 720 MG BOLUS ?1800 MG DRIP
     Route: 042
     Dates: start: 20140617, end: 20140618
  38. OXALIPLATIN. [Suspect]
     Active Substance: OXALIPLATIN
     Route: 042
     Dates: start: 20140121, end: 20140121
  39. FOLINIC ACID [Suspect]
     Active Substance: LEUCOVORIN
     Route: 042
     Dates: start: 20131210, end: 20131211
  40. AVASTIN [Suspect]
     Active Substance: BEVACIZUMAB
     Indication: COLORECTAL CANCER METASTATIC
     Dosage: DAILY DOSE: 530 MG MILLGRAM(S) EVERY 2 WEEKS
     Route: 042
     Dates: start: 20131008, end: 20131008
  41. OXALIPLATIN. [Suspect]
     Active Substance: OXALIPLATIN
     Route: 042
     Dates: start: 20131119, end: 20131119
  42. 5?FU [Suspect]
     Active Substance: FLUOROURACIL
     Dosage: 1280 MG BOLUS?1900 MG DRIP
     Route: 042
     Dates: start: 20131210, end: 20131211
  43. 5?FU [Suspect]
     Active Substance: FLUOROURACIL
     Dosage: 720 MG BOLUS? 1800 MG DRIP
     Route: 042
     Dates: start: 20140822, end: 20140823
  44. SODIUM CHLORIDE. [Concomitant]
     Active Substance: SODIUM CHLORIDE
     Indication: BLOOD CREATININE INCREASED
     Route: 042
     Dates: start: 20141001, end: 20141001
  45. TINCTURE OF OPIUM [Concomitant]
     Active Substance: OPIUM
     Route: 048
     Dates: start: 20140227
  46. 5?FU [Suspect]
     Active Substance: FLUOROURACIL
     Dosage: 1600 MG BOLUS ?2400 MG DRIP
     Route: 042
     Dates: start: 20140326, end: 20140327
  47. AVASTIN [Suspect]
     Active Substance: BEVACIZUMAB
     Dosage: DAILY DOSE: 420 MG MILLGRAM(S) EVERY 2 WEEKS
     Route: 042
     Dates: start: 20131210, end: 20131210
  48. 5?FU [Suspect]
     Active Substance: FLUOROURACIL
     Dosage: 720 MG BOLUS ? 1800 MG DRIP
     Route: 042
     Dates: start: 20140930, end: 20141001
  49. FOLINIC ACID [Suspect]
     Active Substance: LEUCOVORIN
     Route: 042
     Dates: start: 20140211, end: 20140212
  50. RAMIPRIL. [Concomitant]
     Active Substance: RAMIPRIL
     Indication: HYPERTENSION
     Dosage: 2.5 MILLIGRAM DAILY; DAILY DOSE: 2.5 MG MILLGRAM(S) EVERY DAYS
     Route: 048

REACTIONS (7)
  - Neutropenia [Recovered/Resolved]
  - Pulmonary embolism [Recovered/Resolved]
  - Malignant neoplasm progression [Fatal]
  - Febrile neutropenia [Recovered/Resolved]
  - Diarrhoea [Recovered/Resolved]
  - Neutropenia [Recovered/Resolved]
  - Anaemia [Recovered/Resolved]

NARRATIVE: CASE EVENT DATE: 20131030
